FAERS Safety Report 9202781 (Version 1)
Quarter: 2013Q2

REPORT INFORMATION
  Report Type: Spontaneous
  Country: JP (occurrence: JP)
  Receive Date: 20130401
  Receipt Date: 20130412
  Transmission Date: 20140414
  Serious: Yes (Other)
  Sender: FDA-Public Use
  Company Number: JP-BAXTER-2013BAX011673

PATIENT
  Age: 2 Year
  Sex: Female

DRUGS (2)
  1. KIOVIG SOLUTION FOR INFUSION 10% [Suspect]
     Indication: KAWASAKI^S DISEASE
     Route: 042
  2. KIOVIG SOLUTION FOR INFUSION 10% [Suspect]
     Dosage: 1 G/KG
     Route: 042

REACTIONS (1)
  - Drug ineffective [Recovered/Resolved]
